FAERS Safety Report 9026518 (Version 1)
Quarter: 2013Q1

REPORT INFORMATION
  Report Type: Spontaneous
  Country: IT (occurrence: None)
  Receive Date: 20130107
  Receipt Date: 20130107
  Transmission Date: 20140127
  Serious: Yes (Other)
  Sender: FDA-Public Use
  Company Number: IT-PIERREL-00034

PATIENT
  Age: 41 Year
  Sex: Female

DRUGS (1)
  1. ARTICAINE\EPINEPHRINE [Suspect]
     Indication: ANAESTHESIA PROCEDURE
     Dosage: 1:100000 3.4ML X1 DENTAL
     Dates: start: 2012

REACTIONS (4)
  - Stomatitis necrotising [None]
  - Pain [None]
  - Poor personal hygiene [None]
  - Mouth ulceration [None]
